FAERS Safety Report 8428008 (Version 2)
Quarter: 2013Q1

REPORT INFORMATION
  Report Type: Spontaneous
  Country: US (occurrence: US)
  Receive Date: 20120227
  Receipt Date: 20130130
  Transmission Date: 20140127
  Serious: No
  Sender: FDA-Public Use
  Company Number: US-B.I. PHARMACEUTICALS,INC./RIDGEFIELD-2012-BP-02973BP

PATIENT
  Age: 81 Year
  Sex: Male

DRUGS (7)
  1. PRADAXA [Suspect]
     Indication: ATRIAL FIBRILLATION
     Dosage: 150 MG
     Route: 048
     Dates: start: 2010
  2. PRADAXA [Suspect]
     Dosage: 150 MG
     Route: 048
  3. KEPPRA [Concomitant]
     Indication: CONVULSION
     Dosage: 1000 MG
     Route: 048
     Dates: start: 2006
  4. ALLOPURINOL [Concomitant]
     Indication: GOUT
     Dosage: 300 MG
     Route: 048
     Dates: start: 2006
  5. CARDIZEM [Concomitant]
     Dosage: 180 MG
     Route: 048
  6. LEVOTHYROXINE [Concomitant]
     Indication: HYPOTHYROIDISM
     Route: 048
  7. LASIX [Concomitant]
     Route: 048

REACTIONS (5)
  - Faeces discoloured [Recovered/Resolved]
  - Haematochezia [Recovered/Resolved]
  - Large intestine polyp [Recovered/Resolved]
  - Haemorrhoids [Not Recovered/Not Resolved]
  - Dyspepsia [Recovered/Resolved]
